FAERS Safety Report 8963685 (Version 2)
Quarter: 2014Q1

REPORT INFORMATION
  Report Type: Spontaneous
  Country: US (occurrence: US)
  Receive Date: 20121214
  Receipt Date: 20140331
  Transmission Date: 20141002
  Serious: Yes (Other)
  Sender: FDA-Public Use
  Company Number: US-BAYER-2012-130112

PATIENT
  Age: 31 Year
  Sex: Female

DRUGS (10)
  1. YASMIN [Suspect]
     Dosage: UNK
     Dates: start: 200709
  2. OCELLA [Suspect]
     Dosage: UNK
     Dates: start: 200709
  3. FLUOXETINE [Concomitant]
     Route: 048
  4. BUPROPION [Concomitant]
  5. GABAPENTIN [Concomitant]
     Route: 048
  6. VITAMIN D [Concomitant]
     Route: 048
  7. PHENERGAN [Concomitant]
  8. PROZAC [Concomitant]
  9. WELLBUTRIN [Concomitant]
  10. PERCOCET [Concomitant]

REACTIONS (5)
  - Cholecystitis chronic [None]
  - Cholelithiasis [None]
  - Injury [None]
  - Pain [None]
  - Pain [None]
